FAERS Safety Report 13337250 (Version 2)
Quarter: 2017Q3

REPORT INFORMATION
  Report Type: Report from Study
  Country: FR (occurrence: FR)
  Receive Date: 20170315
  Receipt Date: 20170927
  Transmission Date: 20171127
  Serious: Yes (Hospitalization)
  Sender: FDA-Public Use
  Company Number: FR-ROCHE-1906776

PATIENT
  Age: 66 Year
  Sex: Male
  Weight: 72 kg

DRUGS (3)
  1. CARBOPLATIN. [Concomitant]
     Active Substance: CARBOPLATIN
     Dosage: FURTHER DOSES WERE RECEIVED ON 28/OCT/2015, 25/NOV/2015, 23/DEC/2015
     Route: 065
     Dates: start: 20150930
  2. BEVACIZUMAB. [Suspect]
     Active Substance: BEVACIZUMAB
     Indication: NON-SMALL CELL LUNG CANCER
     Route: 065
     Dates: start: 20150930, end: 20160705
  3. PACLITAXEL. [Concomitant]
     Active Substance: PACLITAXEL
     Dosage: FURTHER DOSES WERE RECEIVED ON 28/OCT/2015, 04/NOV/2015, 11/NOV/2015, 25/NOV/2015, 02/DEC/2015, 23/D
     Route: 065
     Dates: start: 20150930

REACTIONS (1)
  - Acute coronary syndrome [Recovered/Resolved]

NARRATIVE: CASE EVENT DATE: 20160707
